FAERS Safety Report 8979579 (Version 1)
Quarter: 2012Q4

REPORT INFORMATION
  Report Type: 
  Country: US (occurrence: US)
  Receive Date: 20121221
  Receipt Date: 20121221
  Transmission Date: 20130627
  Serious: Yes (Other)
  Sender: FDA-Public Use
  Company Number: PHHY2012US117864

PATIENT
  Sex: Female

DRUGS (1)
  1. ESTROGEN [Suspect]
     Dosage: UNK UKN, UNK
     Route: 048

REACTIONS (6)
  - Lymphatic system neoplasm [Unknown]
  - Osteoporosis [Unknown]
  - Breast cancer [Unknown]
  - Breast neoplasm [Unknown]
  - Breast swelling [Unknown]
  - Red blood cell count increased [Unknown]
